FAERS Safety Report 4467723-X (Version None)
Quarter: 2004Q4

REPORT INFORMATION
  Report Type: 
  Country: None (occurrence: None)
  Receive Date: 20041004
  Receipt Date: 20041004
  Transmission Date: 20050328
  Serious: Yes (Hospitalization)
  Sender: FDA-Public Use
  Company Number: None

PATIENT
  Age: 55 Year
  Sex: Female
  Weight: 83.9154 kg

DRUGS (2)
  1. ZELNORM [Suspect]
     Indication: IRRITABLE BOWEL SYNDROME
     Dosage: 1 2 TIMES ORAL
     Route: 048
     Dates: start: 20040923, end: 20040926
  2. DILANTIN [Concomitant]

REACTIONS (2)
  - CONVULSION [None]
  - FOAMING AT MOUTH [None]
